FAERS Safety Report 7069425-2 (Version None)
Quarter: 2010Q4

REPORT INFORMATION
  Report Type: 
  Country: None (occurrence: None)
  Receive Date: 20101028
  Receipt Date: 20101026
  Transmission Date: 20110411
  Serious: Yes (Hospitalization)
  Sender: FDA-Public Use
  Company Number: FR-MERCK-1010FRA00092

PATIENT
  Age: 55 Year
  Sex: Male

DRUGS (3)
  1. HYZAAR [Suspect]
     Route: 048
     Dates: end: 20100803
  2. AMLODIPINE [Concomitant]
     Route: 065
  3. PERINDOPRIL ARGININE [Concomitant]
     Route: 065

REACTIONS (2)
  - ELECTROCARDIOGRAM QT PROLONGED [None]
  - HYPOKALAEMIA [None]
